FAERS Safety Report 6283293-8 (Version None)
Quarter: 2009Q3

REPORT INFORMATION
  Report Type: 
  Country: None (occurrence: None)
  Receive Date: 20090724
  Receipt Date: 20090713
  Transmission Date: 20100115
  Serious: Yes (Other)
  Sender: FDA-Public Use
  Company Number: CO-PFIZER INC-2009242272

PATIENT
  Age: 51 Year

DRUGS (2)
  1. DOSTINEX [Suspect]
     Indication: PITUITARY TUMOUR BENIGN
     Dosage: 0.5 MG, EACH 8 DAYS
     Route: 048
     Dates: start: 20030101
  2. NEURONTIN [Suspect]

REACTIONS (3)
  - DEMYELINATING POLYNEUROPATHY [None]
  - DRUG INEFFECTIVE [None]
  - HYPOAESTHESIA [None]
